FAERS Safety Report 17421903 (Version 5)
Quarter: 2020Q1

REPORT INFORMATION
  Report Type: Spontaneous
  Country: US (occurrence: US)
  Receive Date: 20200214
  Receipt Date: 20200330
  Transmission Date: 20200409
  Serious: Yes (Other)
  Sender: FDA-Public Use
  Company Number: NVSC2020US039437

PATIENT
  Age: 88 Year
  Sex: Female

DRUGS (1)
  1. BEOVU [Suspect]
     Active Substance: BROLUCIZUMAB-DBLL
     Indication: NEOVASCULAR AGE-RELATED MACULAR DEGENERATION
     Dosage: 6 MG, QMO
     Route: 047
     Dates: start: 20191211, end: 20200115

REACTIONS (12)
  - Visual acuity reduced [Recovering/Resolving]
  - Keratic precipitates [Recovering/Resolving]
  - Eye haemorrhage [Unknown]
  - Iritis [Recovering/Resolving]
  - Corneal disorder [Recovering/Resolving]
  - Visual impairment [Not Recovered/Not Resolved]
  - Retinal artery occlusion [Recovering/Resolving]
  - Vasculitis [Unknown]
  - Retinal vasculitis [Not Recovered/Not Resolved]
  - Blindness [Not Recovered/Not Resolved]
  - Uveitis [Recovering/Resolving]
  - Vitritis [Recovered/Resolved]

NARRATIVE: CASE EVENT DATE: 20191211
